FAERS Safety Report 4502816-X (Version None)
Quarter: 2004Q4

REPORT INFORMATION
  Report Type: 
  Country: None (occurrence: None)
  Receive Date: 20041112
  Receipt Date: 20041101
  Transmission Date: 20050328
  Serious: Yes (Hospitalization)
  Sender: FDA-Public Use
  Company Number: K200401688

PATIENT
  Age: 53 Year
  Sex: Male

DRUGS (8)
  1. ALTACE [Suspect]
     Dosage: SEE IMAGE
     Route: 048
     Dates: end: 20040801
  2. ALTACE [Suspect]
     Dosage: SEE IMAGE
     Route: 048
     Dates: start: 20030815
  3. ALTACE [Suspect]
     Dosage: SEE IMAGE
     Route: 048
     Dates: start: 20040801
  4. ADEFOVIR (ADEFOVIR)TABLET, 10 MG [Suspect]
     Dosage: 10 MG, QD, ORAL
     Route: 048
     Dates: start: 20030812, end: 20040712
  5. ZIDOVUDINE [Concomitant]
  6. ABACAVIR (ABACAVIR) [Concomitant]
  7. LAMIVUDINE (LAMIVUDINE) [Concomitant]
  8. EFAVIRENZ (EFAVIRENZ) [Concomitant]

REACTIONS (8)
  - DEHYDRATION [None]
  - DIABETES MELLITUS [None]
  - GLOMERULAR VASCULAR DISORDER [None]
  - HEPATITIS C VIRUS [None]
  - HYPERTENSION [None]
  - RENAL FAILURE ACUTE [None]
  - RENAL TUBULAR DISORDER [None]
  - VOMITING [None]
